FAERS Safety Report 9384605 (Version 1)
Quarter: 2013Q3

REPORT INFORMATION
  Report Type: Spontaneous
  Country: US (occurrence: US)
  Receive Date: 20130705
  Receipt Date: 20130705
  Transmission Date: 20140515
  Serious: No
  Sender: FDA-Public Use
  Company Number: US-BAYER-2013-080575

PATIENT
  Age: 53 Year
  Sex: Female
  Weight: 68.03 kg

DRUGS (7)
  1. BETASERON [Suspect]
     Dosage: 0.25 MG, QOD
     Route: 058
  2. CITALOPRAM [Concomitant]
     Dosage: 10 MG, UNK
  3. OMEPRAZOLE [Concomitant]
     Dosage: 20 MG, UNK
  4. LEVOTHYROXIN [Concomitant]
     Dosage: 25 ?G, UNK
  5. VITAMIN D [Concomitant]
     Dosage: 400 U, UNK
  6. CALCIUM [Concomitant]
     Dosage: 500 UNK, UNK
  7. MULTIVITAMIN [Concomitant]

REACTIONS (6)
  - Fall [None]
  - Local swelling [Unknown]
  - Contusion [Unknown]
  - Injection site erythema [Unknown]
  - Injection site pain [Unknown]
  - Injection site swelling [Unknown]
